FAERS Safety Report 18258862 (Version 8)
Quarter: 2021Q3

REPORT INFORMATION
  Report Type: Spontaneous
  Country: US (occurrence: US)
  Receive Date: 20200911
  Receipt Date: 20210804
  Transmission Date: 20211014
  Serious: No
  Sender: FDA-Public Use
  Company Number: US-PFIZER INC-2020349393

PATIENT
  Age: 67 Year
  Sex: Female
  Weight: 58.97 kg

DRUGS (3)
  1. LORBRENA [Suspect]
     Active Substance: LORLATINIB
     Indication: NON-SMALL CELL LUNG CANCER STAGE IV
     Dosage: 100 MG, DAILY
     Route: 048
     Dates: start: 20200806
  2. LORBRENA [Suspect]
     Active Substance: LORLATINIB
     Indication: COR PULMONALE ACUTE
  3. LORBRENA [Suspect]
     Active Substance: LORLATINIB
     Indication: PULMONARY EMBOLISM
     Dosage: 25 MG

REACTIONS (2)
  - Joint swelling [Not Recovered/Not Resolved]
  - Peripheral swelling [Not Recovered/Not Resolved]

NARRATIVE: CASE EVENT DATE: 2020
